FAERS Safety Report 7971332-5 (Version None)
Quarter: 2011Q4

REPORT INFORMATION
  Report Type: 
  Country: None (occurrence: None)
  Receive Date: 20111212
  Receipt Date: 20111208
  Transmission Date: 20120403
  Serious: Yes (Other)
  Sender: FDA-Public Use
  Company Number: US-PFIZER INC-2011300258

PATIENT
  Sex: Male

DRUGS (3)
  1. DILANTIN [Suspect]
     Dosage: 100 MG, UNK
     Dates: start: 20110401, end: 20110801
  2. DILANTIN [Suspect]
     Dosage: 30 MG, UNK
     Dates: end: 20110401
  3. DILANTIN [Suspect]
     Dosage: 30 MG, UNK
     Dates: start: 20110801

REACTIONS (3)
  - EOSINOPHIL COUNT INCREASED [None]
  - DRUG LEVEL INCREASED [None]
  - VASCULITIS [None]
